FAERS Safety Report 11275079 (Version 1)
Quarter: 2015Q3

REPORT INFORMATION
  Report Type: Spontaneous
  Country: US (occurrence: None)
  Receive Date: 20150714
  Receipt Date: 20150714
  Transmission Date: 20151125
  Serious: Yes (Life-Threatening)
  Sender: FDA-Public Use
  Company Number: None

PATIENT
  Age: 66 Year
  Sex: Male
  Weight: 104.1 kg

DRUGS (1)
  1. OMNIPAQUE [Suspect]
     Active Substance: IOHEXOL
     Indication: COMPUTERISED TOMOGRAM
     Route: 042
     Dates: start: 20150429

REACTIONS (4)
  - Throat tightness [None]
  - Syncope [None]
  - Seizure [None]
  - Erythema [None]

NARRATIVE: CASE EVENT DATE: 20150429
